FAERS Safety Report 9294840 (Version 2)
Quarter: 2013Q2

REPORT INFORMATION
  Report Type: Spontaneous
  Country: US (occurrence: US)
  Receive Date: 20130517
  Receipt Date: 20130610
  Transmission Date: 20140414
  Serious: Yes (Hospitalization)
  Sender: FDA-Public Use
  Company Number: US-PFIZER INC-2013145499

PATIENT
  Age: 63 Year
  Sex: Female

DRUGS (19)
  1. BOSULIF [Suspect]
     Indication: MYELOID LEUKAEMIA
     Dosage: 500 MG, 1X/DAY
     Route: 048
     Dates: start: 20130427, end: 2013
  2. GLEEVEC [Suspect]
     Dosage: 200 MG, 2X/DAY (2-100MG TABLETS BID, 400MG/DAY)
     Route: 048
  3. PLAVIX [Concomitant]
     Dosage: 75 MG, 1X/DAY
  4. ASPIRIN [Concomitant]
     Dosage: 81 MG, 1X/DAY
     Route: 048
  5. NEXIUM [Concomitant]
     Dosage: 20 MG, 1X/DAY (EVERY MORNING BEFORE BREAKFAST)
     Route: 048
  6. SPRYCEL [Concomitant]
     Dosage: 100 MG, 1X/DAY
     Route: 048
  7. ADVAIR DISKUS [Concomitant]
     Dosage: 1 DF, 2X/DAY  (1 PUFF INHALE BY MOUTH EVERY 12 HOURS)
  8. GLYBURIDE [Concomitant]
     Dosage: 5 MG, 1X/DAY (WITH BREAKFAST)
     Route: 048
  9. ATENOLOL [Concomitant]
     Dosage: 100 MG, 1X/DAY
     Route: 048
  10. LIPITOR [Concomitant]
     Dosage: 40 MG, 1X/DAY
     Route: 048
  11. CITALOPRAM [Concomitant]
     Dosage: 10 MG, 1X/DAY
     Route: 048
  12. FLUTICASONE [Concomitant]
     Dosage: 50 UG, 2 SPRAYS IN EACH NOSTRIL DAILY (4 TOTAL)
  13. HYDROXYUREA [Concomitant]
     Dosage: 2000 MG, 1X/DAY (4-500MG TABLETS, OK TO TAKE 2 CAPS TABS IN MOR AND 2 TABS AT NIGHT)
     Route: 048
  14. ZYRTEC [Concomitant]
     Dosage: 10 MG, 1X/DAY (AS NEEDED)
     Route: 048
  15. PROCHLORPERAZINE [Concomitant]
     Indication: NAUSEA
     Dosage: 10 MG, 4X/DAY (EVERY 6 HOURS AS NEEDED)
     Route: 048
  16. PROCHLORPERAZINE [Concomitant]
     Indication: VOMITING
  17. FLOVENT HFA [Concomitant]
     Dosage: 110 UG, 2X/DAY (INHALE 1 PUFF BY MOUTH EVERY 12 HOURS)
  18. ALBUTEROL [Concomitant]
     Dosage: 1.25 MG, 4X/DAY (EVERY 6 HOURS AS NEEDED)
     Route: 048
  19. CLOPIDOGREL [Concomitant]
     Dosage: 75 MG, 1X/DAY
     Route: 048

REACTIONS (5)
  - Chest pain [Recovered/Resolved]
  - Dyspnoea [Recovered/Resolved]
  - Pain in extremity [Recovered/Resolved]
  - Neck pain [Recovered/Resolved]
  - Palpitations [Recovered/Resolved]
